FAERS Safety Report 18804929 (Version 1)
Quarter: 2021Q1

REPORT INFORMATION
  Report Type: Spontaneous
  Country: US (occurrence: US)
  Receive Date: 20210128
  Receipt Date: 20210128
  Transmission Date: 20210419
  Serious: No
  Sender: FDA-Public Use
  Company Number: US-009507513-2101USA012359

PATIENT
  Age: 62 Year
  Sex: Female

DRUGS (11)
  1. LENVATINIB MESYLATE [Suspect]
     Active Substance: LENVATINIB MESYLATE
     Indication: CANCER PAIN
     Dosage: 14 MILLIGRAM, QD; STRENGTH REPORTED AS 10 AND 4 MG
     Route: 048
  2. AMLODIPINE BESYLATE. [Concomitant]
     Active Substance: AMLODIPINE BESYLATE
  3. PRINIVIL [Concomitant]
     Active Substance: LISINOPRIL
  4. VITAMIN B COMPLEX [Concomitant]
     Active Substance: CYANOCOBALAMIN\DEXPANTHENOL\NIACINAMIDE\PYRIDOXINE HYDROCHLORIDE\RIBOFLAVIN 5^-PHOSPHATE SODIUM\THIAMINE HYDROCHLORIDE\VITAMIN B COMPLEX
  5. DOCUSATE SODIUM. [Concomitant]
     Active Substance: DOCUSATE SODIUM
  6. LANSOPRAZOLE. [Concomitant]
     Active Substance: LANSOPRAZOLE
  7. GABAPENTIN. [Concomitant]
     Active Substance: GABAPENTIN
  8. CLOPIDOGREL [Concomitant]
     Active Substance: CLOPIDOGREL BISULFATE
  9. TYLENOL [Concomitant]
     Active Substance: ACETAMINOPHEN
  10. KEYTRUDA [Suspect]
     Active Substance: PEMBROLIZUMAB
  11. OXYCODONE [Concomitant]
     Active Substance: OXYCODONE

REACTIONS (6)
  - Pain [Unknown]
  - Nausea [Unknown]
  - Fatigue [Unknown]
  - Abdominal discomfort [Unknown]
  - Flatulence [Unknown]
  - Ill-defined disorder [Unknown]
